FAERS Safety Report 9166712 (Version 1)
Quarter: 2013Q1

REPORT INFORMATION
  Report Type: Spontaneous
  Country: US (occurrence: US)
  Receive Date: 20130315
  Receipt Date: 20130315
  Transmission Date: 20140127
  Serious: Yes (Hospitalization)
  Sender: FDA-Public Use
  Company Number: US-009507513-1303USA005038

PATIENT
  Age: 57 Year
  Sex: Female
  Weight: 65.31 kg

DRUGS (19)
  1. VICTRELIS [Suspect]
     Indication: HEPATITIS C
     Dosage: 800 MG, QD
     Route: 048
     Dates: start: 20120316, end: 20120520
  2. RIBAVIRIN [Suspect]
     Indication: HEPATITIS C
     Dosage: 1000 MG, QD
     Route: 048
     Dates: start: 20120217, end: 20120520
  3. PEGINTERFERON ALFA-2A [Suspect]
     Indication: HEPATITIS C
     Dosage: 180 MICROGRAM, QW
     Dates: start: 20120217, end: 20120520
  4. WELLBUTRIN XL [Concomitant]
     Indication: DEPRESSION
     Dosage: 150 MG, QD
     Route: 048
  5. COUMADIN [Concomitant]
     Route: 048
  6. K-TAB [Concomitant]
     Dosage: 10 MEQ, QD
     Route: 048
  7. ZOFRAN [Concomitant]
     Indication: NAUSEA
     Dosage: 4 MG, 1 IN 8 HOURS AS NEEDED
     Route: 048
  8. ZOFRAN [Concomitant]
     Indication: VOMITING
  9. PROAIR (ALBUTEROL SULFATE) [Concomitant]
     Indication: DYSPNOEA
     Dosage: 2 PUFFS (EVERY HOURS)
     Route: 055
  10. RESTASIS [Concomitant]
     Dosage: 0.4 ML, BID
  11. DULERA [Concomitant]
     Dosage: 2 PUFFS, BID
  12. TOPAMAX [Concomitant]
     Indication: PANIC ATTACK
     Dosage: 2 MG, QD
     Route: 048
  13. CYMBALTA [Concomitant]
     Dosage: 20 MG, UNK
     Route: 048
  14. IMITREX (SUMATRIPTAN SUCCINATE) [Concomitant]
     Indication: MIGRAINE
     Dosage: 1 DF, UNK
     Route: 048
  15. LASIX (FUROSEMIDE) [Concomitant]
     Indication: JOINT SWELLING
     Dosage: 1 TO 2 TABLETS FOR 3 TO 5 DAYS (40 MG)
     Route: 048
  16. KLONOPIN [Concomitant]
     Indication: PANIC ATTACK
     Dosage: 1 DF, UNK
     Route: 048
  17. METHADONE HYDROCHLORIDE [Concomitant]
     Indication: PAIN
     Dosage: 4 DF, QD
  18. LEVOTHROID [Concomitant]
     Dosage: 112 MICROGRAM, QD
     Route: 048
  19. POTASSIUM CHLORIDE [Concomitant]
     Dosage: 10 MEQ, QD
     Route: 048

REACTIONS (3)
  - Infection [Recovered/Resolved]
  - Rash [Recovered/Resolved]
  - Nausea [Not Recovered/Not Resolved]
